FAERS Safety Report 15101725 (Version 1)
Quarter: 2018Q3

REPORT INFORMATION
  Report Type: Other
  Country: ES (occurrence: ES)
  Receive Date: 20180703
  Receipt Date: 20180703
  Transmission Date: 20181010
  Serious: Yes (Hospitalization)
  Sender: FDA-Public Use
  Company Number: ES-GLENMARK PHARMACEUTICALS-2018GMK036329

PATIENT

DRUGS (5)
  1. ATORVASTATINA [Suspect]
     Active Substance: ATORVASTATIN
     Indication: ACUTE MYOCARDIAL INFARCTION
     Dosage: 40 ?G, QD (0?0?1)
     Route: 048
     Dates: start: 20180312, end: 20180615
  2. ADIRO [Suspect]
     Active Substance: ASPIRIN
     Indication: ACUTE MYOCARDIAL INFARCTION
     Dosage: 100 MG, QD (1?0?0)
     Route: 048
     Dates: start: 20180312
  3. SYRON (FERRIMANNITOL OVALBUMIN) [Suspect]
     Active Substance: FERRIC OXIDE RED
     Indication: ANAEMIA
     Dosage: 80 MG, QD (1?0?0)
     Route: 048
     Dates: start: 20180427
  4. BRILIQUE [Suspect]
     Active Substance: TICAGRELOR
     Indication: ACUTE MYOCARDIAL INFARCTION
     Dosage: 90 MG, QD (1?0?1)
     Route: 048
     Dates: start: 20180312
  5. ZONISAMIDE. [Suspect]
     Active Substance: ZONISAMIDE
     Indication: TREMOR
     Dosage: 50 MG, QD (0?0?1)
     Route: 048
     Dates: start: 20160316

REACTIONS (1)
  - Hepatitis toxic [Recovering/Resolving]

NARRATIVE: CASE EVENT DATE: 20180617
